FAERS Safety Report 4432547-6 (Version None)
Quarter: 2004Q3

REPORT INFORMATION
  Report Type: 
  Country: None (occurrence: None)
  Receive Date: 20040820
  Receipt Date: 20040811
  Transmission Date: 20050211
  Serious: Yes (Hospitalization)
  Sender: FDA-Public Use
  Company Number: 2004UW17103

PATIENT
  Age: 41 Year
  Sex: Male
  Weight: 111.4034 kg

DRUGS (7)
  1. SEROQUEL [Suspect]
     Indication: SCHIZOPHRENIA
     Dosage: 200 MG BID PO
     Route: 048
     Dates: start: 20040719, end: 20040809
  2. SEROQUEL [Suspect]
     Indication: SCHIZOPHRENIA
     Dosage: 600 MG DAILY PO
     Route: 048
     Dates: start: 20040810
  3. RABEPRAZOLE SODIUM [Concomitant]
  4. TYLENOL [Concomitant]
  5. GLYBURIDE [Concomitant]
  6. LOVASTATIN [Concomitant]
  7. RISPERIDONE [Concomitant]

REACTIONS (7)
  - ANXIETY [None]
  - DYSPHORIA [None]
  - HALLUCINATION, AUDITORY [None]
  - INSOMNIA [None]
  - SCHIZOPHRENIA, PARANOID TYPE [None]
  - SPEECH DISORDER [None]
  - TREATMENT NONCOMPLIANCE [None]
